FAERS Safety Report 8998685 (Version 1)
Quarter: 2013Q1

REPORT INFORMATION
  Report Type: Spontaneous
  Country: US (occurrence: US)
  Receive Date: 20130103
  Receipt Date: 20130103
  Transmission Date: 20140127
  Serious: Yes (Other)
  Sender: FDA-Public Use
  Company Number: US-PFIZER INC-2013001548

PATIENT
  Age: 77 Year
  Sex: Female
  Weight: 90.7 kg

DRUGS (2)
  1. SERTRALINE HCL [Suspect]
     Indication: DEPRESSION
     Dosage: 50 MG, 1X/DAY
     Route: 048
     Dates: end: 201212
  2. WARFARIN [Concomitant]
     Dosage: UNK

REACTIONS (5)
  - Intraocular melanoma [Unknown]
  - Visual acuity reduced [Unknown]
  - Alopecia [Unknown]
  - Skin disorder [Unknown]
  - Glossodynia [Unknown]
